FAERS Safety Report 6321793-2 (Version None)
Quarter: 2009Q3

REPORT INFORMATION
  Report Type: 
  Country: None (occurrence: None)
  Receive Date: 20090819
  Receipt Date: 20090804
  Transmission Date: 20100115
  Serious: Yes (Death, Congenital Anomaly)
  Sender: FDA-Public Use
  Company Number: 8047685

PATIENT
  Sex: Male
  Weight: 0.25 kg

DRUGS (2)
  1. XYZAL [Suspect]
     Dosage: TRP
     Route: 064
  2. STEROID INHALATIONS [Concomitant]

REACTIONS (6)
  - ABORTION SPONTANEOUS [None]
  - CONGENITAL ANOMALY [None]
  - CONGENITAL ORAL MALFORMATION [None]
  - DRUG EXPOSURE DURING PREGNANCY [None]
  - LOW SET EARS [None]
  - TALIPES [None]
